FAERS Safety Report 25925474 (Version 1)
Quarter: 2025Q4

REPORT INFORMATION
  Report Type: Spontaneous
  Country: US (occurrence: None)
  Receive Date: 20251014
  Receipt Date: 20251014
  Transmission Date: 20260117
  Serious: No
  Sender: FDA-CTU
  Company Number: None

PATIENT
  Age: 43 Year
  Sex: Female
  Weight: 47.25 kg

DRUGS (4)
  1. PAROXETINE [Suspect]
     Active Substance: PAROXETINE
  2. VITAMIN C [Concomitant]
     Active Substance: ASCORBIC ACID
  3. VITAMIN D [Concomitant]
     Active Substance: VITAMIN D NOS
  4. MULTI-VITAMIN [Concomitant]
     Active Substance: .ALPHA.-TOCOPHEROL ACETATE, DL-\ASCORBIC ACID\CYANOCOBALAMIN\FLUORIDE ION\FOLIC ACID\NIACIN\PYRIDOXI

REACTIONS (18)
  - Withdrawal syndrome [None]
  - Irritability [None]
  - Pain in extremity [None]
  - Obsessive thoughts [None]
  - Mood swings [None]
  - Feeling guilty [None]
  - Emotional distress [None]
  - Emotional distress [None]
  - Crying [None]
  - Intrusive thoughts [None]
  - Feelings of worthlessness [None]
  - Psychiatric symptom [None]
  - Impaired quality of life [None]
  - Disturbance in attention [None]
  - Anhedonia [None]
  - Derealisation [None]
  - Personal relationship issue [None]
  - Inferiority complex [None]

NARRATIVE: CASE EVENT DATE: 20240720
